FAERS Safety Report 23674703 (Version 5)
Quarter: 2024Q2

REPORT INFORMATION
  Report Type: Spontaneous
  Country: DE (occurrence: DE)
  Receive Date: 20240326
  Receipt Date: 20240522
  Transmission Date: 20240716
  Serious: Yes (Hospitalization, Other)
  Sender: FDA-Public Use
  Company Number: DE-002147023-NVSC2024DE064552

PATIENT
  Age: 73 Year
  Sex: Female

DRUGS (8)
  1. TAFINLAR [Suspect]
     Active Substance: DABRAFENIB MESYLATE
     Indication: Malignant melanoma
     Dosage: UNK
     Route: 065
     Dates: start: 201805, end: 201910
  2. TAFINLAR [Suspect]
     Active Substance: DABRAFENIB MESYLATE
     Dosage: UNK UNK, BID (1-0-1)
     Route: 065
     Dates: start: 201910, end: 202002
  3. TAFINLAR [Suspect]
     Active Substance: DABRAFENIB MESYLATE
     Dosage: UNK
     Route: 065
  4. MEKINIST [Suspect]
     Active Substance: TRAMETINIB DIMETHYL SULFOXIDE
     Indication: Malignant melanoma
     Dosage: UNK
     Route: 065
     Dates: start: 201805, end: 201910
  5. MEKINIST [Suspect]
     Active Substance: TRAMETINIB DIMETHYL SULFOXIDE
     Dosage: UNK UNK, QD (1 ? 0 ? 0)
     Route: 065
     Dates: start: 201910, end: 202002
  6. MEKINIST [Suspect]
     Active Substance: TRAMETINIB DIMETHYL SULFOXIDE
     Dosage: UNK
     Route: 065
  7. PROPOFOL [Concomitant]
     Active Substance: PROPOFOL
     Indication: Product used for unknown indication
     Dosage: UNK
     Route: 065
     Dates: start: 20240326, end: 20240326
  8. ASPIRIN [Concomitant]
     Active Substance: ASPIRIN
     Indication: Product used for unknown indication
     Route: 065

REACTIONS (10)
  - Liver injury [Not Recovered/Not Resolved]
  - Cholangitis sclerosing [Unknown]
  - Ileus [Unknown]
  - Renal impairment [Unknown]
  - Thrombocytosis [Unknown]
  - General physical health deterioration [Unknown]
  - Decreased appetite [Unknown]
  - Weight decreased [Unknown]
  - Incisional hernia [Unknown]
  - Anisocytosis [Unknown]

NARRATIVE: CASE EVENT DATE: 20200101
